FAERS Safety Report 19849336 (Version 2)
Quarter: 2021Q3

REPORT INFORMATION
  Report Type: Report from Study
  Country: FR (occurrence: FR)
  Receive Date: 20210917
  Receipt Date: 20210921
  Transmission Date: 20211014
  Serious: Yes (Death)
  Sender: FDA-Public Use
  Company Number: NVSC2021FR210471

PATIENT
  Age: 74 Year
  Sex: Male
  Weight: 90 kg

DRUGS (2)
  1. TRAMETINIB [Suspect]
     Active Substance: TRAMETINIB
     Indication: METASTATIC MALIGNANT MELANOMA
     Dosage: 2 MG
     Route: 048
     Dates: start: 20210430
  2. DABRAFENIB [Suspect]
     Active Substance: DABRAFENIB
     Indication: METASTATIC MALIGNANT MELANOMA
     Dosage: 300 MG
     Route: 048
     Dates: start: 20210430

REACTIONS (2)
  - Metastatic malignant melanoma [Fatal]
  - Malignant neoplasm progression [Fatal]
